FAERS Safety Report 8519744-5 (Version None)
Quarter: 2012Q3

REPORT INFORMATION
  Report Type: 
  Country: None (occurrence: None)
  Receive Date: 20120719
  Receipt Date: 20120712
  Transmission Date: 20120928
  Serious: No
  Sender: FDA-Public Use
  Company Number: US-BIOGENIDEC-2010BI036672

PATIENT
  Sex: Female

DRUGS (2)
  1. TYSABRI [Suspect]
     Indication: MULTIPLE SCLEROSIS
     Route: 042
     Dates: start: 20080506, end: 20100827
  2. TYSABRI [Suspect]
     Route: 042
     Dates: start: 20120214

REACTIONS (8)
  - DEPRESSION [None]
  - MEMORY IMPAIRMENT [None]
  - CONSTIPATION [None]
  - CONFUSIONAL STATE [None]
  - ANXIETY [None]
  - CARDIAC MURMUR [None]
  - FEELING ABNORMAL [None]
  - HEADACHE [None]
